FAERS Safety Report 6730222-6 (Version None)
Quarter: 2010Q2

REPORT INFORMATION
  Report Type: 
  Country: None (occurrence: None)
  Receive Date: 20100512
  Receipt Date: 20100304
  Transmission Date: 20101027
  Serious: No
  Sender: FDA-Public Use
  Company Number: 1000012298

PATIENT
  Age: 49 Year
  Sex: Female

DRUGS (12)
  1. SAVELLA [Suspect]
     Indication: FIBROMYALGIA
     Dosage: 12.5 MG (12.5 MG, 1 IN 1 D), ORAL ; 25 MG (12.5 MG, 2 IN 1 D), ORAL ; 50 MG (25 MG, 2 IN 1 D), ORAL
     Route: 048
     Dates: start: 20100301, end: 20100301
  2. SAVELLA [Suspect]
     Indication: FIBROMYALGIA
     Dosage: 12.5 MG (12.5 MG, 1 IN 1 D), ORAL ; 25 MG (12.5 MG, 2 IN 1 D), ORAL ; 50 MG (25 MG, 2 IN 1 D), ORAL
     Route: 048
     Dates: start: 20100302, end: 20100303
  3. SAVELLA [Suspect]
     Indication: FIBROMYALGIA
     Dosage: 12.5 MG (12.5 MG, 1 IN 1 D), ORAL ; 25 MG (12.5 MG, 2 IN 1 D), ORAL ; 50 MG (25 MG, 2 IN 1 D), ORAL
     Route: 048
     Dates: start: 20100304
  4. ASPIRIN [Concomitant]
  5. TYLENOL [Concomitant]
  6. NEURONTIN [Concomitant]
  7. KETOPROFEN [Concomitant]
  8. KLONOPIN [Concomitant]
  9. BENICAR [Concomitant]
  10. RITALIN [Concomitant]
  11. GARLIC EXTRACT [Concomitant]
  12. LEXAPRO [Concomitant]

REACTIONS (3)
  - DECREASED APPETITE [None]
  - DISTURBANCE IN ATTENTION [None]
  - DRY MOUTH [None]
